FAERS Safety Report 5990064-6 (Version None)
Quarter: 2008Q4

REPORT INFORMATION
  Report Type: 
  Country: None (occurrence: None)
  Receive Date: 20081208
  Receipt Date: 20081125
  Transmission Date: 20090506
  Serious: Yes (Hospitalization)
  Sender: FDA-Public Use
  Company Number: 200814149

PATIENT
  Age: 69 Year
  Sex: Male
  Weight: 93 kg

DRUGS (18)
  1. VIVAGLOBIN [Suspect]
     Indication: IMMUNODEFICIENCY COMMON VARIABLE
     Dosage: 60 ML Q1W SC
     Route: 058
     Dates: start: 20070301
  2. FLONASE [Concomitant]
  3. MULTIVITAMIN/00831701 [Concomitant]
  4. KEPPRA [Concomitant]
  5. AMITRIPTYLINE HCL [Concomitant]
  6. FIBERCON [Concomitant]
  7. FISH OIL [Concomitant]
  8. COMBIVENT [Concomitant]
  9. LORATADINE [Concomitant]
  10. AEROBID [Concomitant]
  11. PRILOSEC [Concomitant]
  12. SINGULAIR [Concomitant]
  13. GUAIFENESIN [Concomitant]
  14. DHE/00017802/ [Concomitant]
  15. ZANAFLEX [Concomitant]
  16. CRESTOR [Concomitant]
  17. DOXYCYCLINE [Concomitant]
  18. AMLODIPINE [Concomitant]

REACTIONS (1)
  - DEEP VEIN THROMBOSIS [None]
